FAERS Safety Report 6410988-5 (Version None)
Quarter: 2009Q4

REPORT INFORMATION
  Report Type: 
  Country: None (occurrence: None)
  Receive Date: 20091022
  Receipt Date: 20091012
  Transmission Date: 20100525
  Serious: Yes (Death, Hospitalization)
  Sender: FDA-Public Use
  Company Number: RO-AMGEN-US370054

PATIENT
  Age: 51 Year
  Sex: Male

DRUGS (3)
  1. ENBREL [Suspect]
     Indication: PSORIASIS
     Route: 058
     Dates: start: 20090511, end: 20090801
  2. ENBREL [Suspect]
     Route: 058
     Dates: start: 20090801, end: 20090903
  3. NSAID'S [Concomitant]
     Indication: HIP FRACTURE
     Dosage: UNSPECIFIED

REACTIONS (3)
  - HIP FRACTURE [None]
  - RENAL FAILURE ACUTE [None]
  - SEPSIS [None]
